FAERS Safety Report 15397271 (Version 2)
Quarter: 2018Q4

REPORT INFORMATION
  Report Type: Report from Study
  Country: JP (occurrence: JP)
  Receive Date: 20180918
  Receipt Date: 20181024
  Transmission Date: 20190204
  Serious: Yes (Other)
  Sender: FDA-Public Use
  Company Number: JP-ACTELION-A-CH2018-178898

PATIENT
  Sex: Female

DRUGS (13)
  1. AZULENE-GLUTAMINE [Concomitant]
  2. ADCIRCA [Suspect]
     Active Substance: TADALAFIL
     Indication: PRODUCT USED FOR UNKNOWN INDICATION
     Route: 065
  3. REGPARA [Concomitant]
     Active Substance: CINACALCET HYDROCHLORIDE
  4. GLAKAY [Concomitant]
     Active Substance: MENATETRENONE
  5. LOPRESOR R [Concomitant]
     Active Substance: METOPROLOL SUCCINATE
  6. RISUMIC [Concomitant]
     Active Substance: AMEZINIUM METILSULFATE
  7. BAYASPIRIN [Concomitant]
     Active Substance: ASPIRIN
  8. ONEALFA [Concomitant]
     Active Substance: ALFACALCIDOL
  9. MECOBALAMIN [Concomitant]
     Active Substance: METHYLCOBALAMIN
  10. FOSRENOL [Concomitant]
     Active Substance: LANTHANUM CARBONATE
  11. OPSUMIT [Suspect]
     Active Substance: MACITENTAN
     Indication: PULMONARY ARTERIAL HYPERTENSION
     Dosage: 10 MG, QD
     Route: 048
     Dates: start: 20151209, end: 20151210
  12. OXYGEN. [Concomitant]
     Active Substance: OXYGEN
  13. LANSOPRAZOLE. [Concomitant]
     Active Substance: LANSOPRAZOLE

REACTIONS (3)
  - Brain natriuretic peptide increased [Recovered/Resolved]
  - Volume blood increased [Recovered/Resolved]
  - Pulmonary congestion [Recovered/Resolved]

NARRATIVE: CASE EVENT DATE: 20151209
